FAERS Safety Report 7972763 (Version 3)
Quarter: 2012Q4

REPORT INFORMATION
  Report Type: 
  Country: US (occurrence: US)
  Receive Date: 20110603
  Receipt Date: 20121003
  Transmission Date: 20130627
  Serious: Yes (Hospitalization, Other)
  Sender: FDA-Public Use
  Company Number: US-BAYER-2010-002481

PATIENT
  Age: 29 Year
  Sex: Female

DRUGS (5)
  1. YASMIN [Suspect]
     Dosage: UNK
     Dates: start: 200703, end: 200709
  2. YAZ [Suspect]
     Dosage: UNK
     Dates: start: 200703, end: 200709
  3. BACLOFEN [Concomitant]
  4. NEURONTIN [Concomitant]
  5. OXYCONTIN [Concomitant]

REACTIONS (4)
  - Gallbladder non-functioning [None]
  - Cholecystitis chronic [None]
  - Gallbladder necrosis [None]
  - Pain [None]
